FAERS Safety Report 9822136 (Version 1)
Quarter: 2014Q1

REPORT INFORMATION
  Report Type: Report from Study
  Country: NL (occurrence: NL)
  Receive Date: 20140116
  Receipt Date: 20140116
  Transmission Date: 20141002
  Serious: Yes (Other)
  Sender: FDA-Public Use
  Company Number: PHHY2014NL004443

PATIENT
  Sex: Female

DRUGS (2)
  1. ACLASTA [Suspect]
     Indication: OSTEOPOROSIS
     Dosage: 5 MG ONCE PER 52 WEEKS
     Route: 042
     Dates: start: 20120112
  2. ACLASTA [Suspect]
     Dosage: 5 MG ONCE PER 52 WEEKS
     Route: 042
     Dates: start: 20140113

REACTIONS (4)
  - Cerebrovascular accident [Recovered/Resolved with Sequelae]
  - Cerebral haemorrhage [Unknown]
  - Memory impairment [Recovered/Resolved with Sequelae]
  - Confusional state [Not Recovered/Not Resolved]
